FAERS Safety Report 6711492-7 (Version None)
Quarter: 2010Q2

REPORT INFORMATION
  Report Type: 
  Country: None (occurrence: None)
  Receive Date: 20100504
  Receipt Date: 20100504
  Transmission Date: 20101027
  Serious: Yes (Hospitalization)
  Sender: FDA-Public Use
  Company Number: None

PATIENT
  Age: 62 Year
  Sex: Female
  Weight: 63.5036 kg

DRUGS (2)
  1. VIVELLE-DOT [Suspect]
     Dates: start: 19961230, end: 20070309
  2. MEDROXYPROGESTERONE [Suspect]

REACTIONS (4)
  - BREAST CANCER [None]
  - CERVIX CARCINOMA STAGE I [None]
  - HYPERPLASIA [None]
  - OESTROGEN RECEPTOR ASSAY POSITIVE [None]
